FAERS Safety Report 7105329 (Version 4)
Quarter: 2013Q2

REPORT INFORMATION
  Report Type: Spontaneous
  Country: US (occurrence: US)
  Receive Date: 20090904
  Receipt Date: 20130617
  Transmission Date: 20140414
  Serious: Yes (Hospitalization)
  Sender: FDA-Public Use
  Company Number: US-BAYER-200931263NA

PATIENT
  Age: 37 Year
  Sex: Female
  Weight: 57.73 kg

DRUGS (2)
  1. YAZ [Suspect]
     Indication: CONTRACEPTION
     Route: 048
     Dates: start: 20080909, end: 20090824
  2. YAZ [Suspect]
     Indication: MENSTRUATION IRREGULAR

REACTIONS (1)
  - Pulmonary embolism [Recovered/Resolved]
